FAERS Safety Report 12146953 (Version 1)
Quarter: 2016Q1

REPORT INFORMATION
  Report Type: Spontaneous
  Country: US (occurrence: US)
  Receive Date: 20160304
  Receipt Date: 20160304
  Transmission Date: 20160526
  Serious: Yes (Death, Hospitalization, Other)
  Sender: FDA-Public Use
  Company Number: US-BAXTER-2016BAX004405

PATIENT
  Age: 63 Year
  Sex: Female

DRUGS (1)
  1. DIANEAL LOW CALCIUM PERITONEAL DIALYSIS SOLUTION WITH DEXTROSE [Suspect]
     Active Substance: CALCIUM CHLORIDE\DEXTROSE\MAGNESIUM CHLORIDE\SODIUM CHLORIDE\SODIUM LACTATE
     Indication: PERITONEAL DIALYSIS
     Route: 033

REACTIONS (8)
  - Cardiac arrest [Fatal]
  - Hypophagia [Recovering/Resolving]
  - Cardiac disorder [Recovering/Resolving]
  - Peritoneal dialysis complication [Recovering/Resolving]
  - Apparent death [Recovering/Resolving]
  - Asthenia [Recovering/Resolving]
  - Hypotension [Recovering/Resolving]
  - Vomiting [Recovering/Resolving]

NARRATIVE: CASE EVENT DATE: 20160118
